FAERS Safety Report 17306617 (Version 1)
Quarter: 2020Q1

REPORT INFORMATION
  Report Type: Spontaneous
  Country: US (occurrence: US)
  Receive Date: 20200123
  Receipt Date: 20200123
  Transmission Date: 20200409
  Serious: No
  Sender: FDA-Public Use
  Company Number: US-ABBVIE-19P-163-3006391-00

PATIENT
  Age: 50 Year
  Sex: Female

DRUGS (1)
  1. SKYRIZI [Suspect]
     Active Substance: RISANKIZUMAB-RZAA
     Indication: PSORIATIC ARTHROPATHY
     Dosage: PT HAS RECEIVED THEIR WEEK 0 AND WEEK 4 DOSES
     Route: 058
     Dates: start: 20191017

REACTIONS (1)
  - Weight decreased [Not Recovered/Not Resolved]
